FAERS Safety Report 4883901-X (Version None)
Quarter: 2006Q1

REPORT INFORMATION
  Report Type: 
  Country: None (occurrence: None)
  Receive Date: 20060113
  Receipt Date: 20060103
  Transmission Date: 20060701
  Serious: Yes (Hospitalization, Other)
  Sender: FDA-Public Use
  Company Number: HQWYE889607DEC05

PATIENT
  Age: 62 Year
  Sex: Male

DRUGS (6)
  1. CORDARONE [Suspect]
     Indication: ATRIAL TACHYCARDIA
     Dosage: 200 MG TABLET, ORAL
     Route: 048
     Dates: end: 20051001
  2. NEBIVOLOL (NEBIVOLOL, ) [Suspect]
     Dosage: 5 MG 1X PER 1 DAY, ORAL
     Route: 048
  3. DIAMICRON (GLICLAZIDE) [Concomitant]
  4. AMLODIPINE BESYLATE [Concomitant]
  5. HYPERIUM (RILMENIDINE) [Concomitant]
  6. COAPROVEL (IRBESARTAN/HYDROCHLOROTHIAZIDE) [Concomitant]

REACTIONS (5)
  - BLOOD PRESSURE INCREASED [None]
  - BRADYARRHYTHMIA [None]
  - DRUG INTERACTION [None]
  - TACHYARRHYTHMIA [None]
  - VENTRICULAR EXTRASYSTOLES [None]
